FAERS Safety Report 6925291-4 (Version None)
Quarter: 2010Q3

REPORT INFORMATION
  Report Type: 
  Country: None (occurrence: None)
  Receive Date: 20100816
  Receipt Date: 20100812
  Transmission Date: 20110219
  Serious: Yes (Other)
  Sender: FDA-Public Use
  Company Number: CH-BRISTOL-MYERS SQUIBB COMPANY-15238231

PATIENT
  Sex: Female
  Weight: 2 kg

DRUGS (8)
  1. ABILIFY [Suspect]
     Indication: SCHIZOPHRENIA
     Route: 064
  2. FLUOXETINE [Suspect]
     Route: 064
  3. TRANXILIUM [Suspect]
     Route: 064
  4. CLEXANE [Concomitant]
     Route: 064
  5. DAFLON [Concomitant]
     Route: 064
  6. PENICILLIN V [Concomitant]
     Route: 064
  7. CEFUROXIME AXETIL [Concomitant]
     Route: 064
  8. LEVOTHYROXINE SODIUM [Concomitant]
     Indication: HYPOTHYROIDISM
     Route: 064

REACTIONS (3)
  - HYPOGLYCAEMIA [None]
  - PREMATURE BABY [None]
  - RESPIRATORY DISTRESS [None]
